FAERS Safety Report 9358831 (Version 3)
Quarter: 2014Q1

REPORT INFORMATION
  Report Type: Spontaneous
  Country: US (occurrence: US)
  Receive Date: 20130620
  Receipt Date: 20140304
  Transmission Date: 20141002
  Serious: Yes (Hospitalization)
  Sender: FDA-Public Use
  Company Number: US-B.I. PHARMACEUTICALS,INC./RIDGEFIELD-2013-BI-17221BP

PATIENT
  Age: 61 Year
  Sex: Male
  Weight: 104.33 kg

DRUGS (4)
  1. PRADAXA [Suspect]
     Indication: ATRIAL FIBRILLATION
     Dosage: 300 NR
     Route: 065
     Dates: start: 20120210, end: 20121112
  2. LISINOPRIL [Concomitant]
     Route: 065
     Dates: start: 2000
  3. INSULIN [Concomitant]
     Route: 065
     Dates: start: 2000
  4. DIURETIC [Concomitant]
     Route: 065

REACTIONS (6)
  - Gastrointestinal haemorrhage [Unknown]
  - Iron deficiency anaemia [Unknown]
  - Varices oesophageal [Unknown]
  - Epistaxis [Unknown]
  - Acute myocardial infarction [Unknown]
  - Chest discomfort [Recovered/Resolved]
